APPROVED DRUG PRODUCT: XTRELUS
Active Ingredient: GUAIFENESIN; HYDROCODONE BITARTRATE
Strength: 400MG;5MG
Dosage Form/Route: TABLET;ORAL
Application: N208085 | Product #001
Applicant: ECI PHARMACEUTICALS LLC
Approved: Apr 25, 2018 | RLD: Yes | RS: No | Type: DISCN